FAERS Safety Report 5925029-3 (Version None)
Quarter: 2008Q4

REPORT INFORMATION
  Report Type: 
  Country: None (occurrence: None)
  Receive Date: 20081021
  Receipt Date: 20081014
  Transmission Date: 20090506
  Serious: Yes (Other)
  Sender: FDA-Public Use
  Company Number: US-BAYER-200824335NA

PATIENT
  Age: 20 Year
  Sex: Female
  Weight: 64 kg

DRUGS (3)
  1. MIRENA [Suspect]
     Indication: CONTRACEPTION
     Route: 015
     Dates: start: 20070525, end: 20080525
  2. LORTAB [Concomitant]
     Indication: DRUG USE FOR UNKNOWN INDICATION
  3. FLEXERIL [Concomitant]
     Indication: DRUG USE FOR UNKNOWN INDICATION

REACTIONS (3)
  - ECTOPIC PREGNANCY WITH INTRAUTERINE DEVICE [None]
  - RUPTURED ECTOPIC PREGNANCY [None]
  - SALPINGECTOMY [None]
